FAERS Safety Report 8057177-9 (Version None)
Quarter: 2012Q1

REPORT INFORMATION
  Report Type: 
  Country: None (occurrence: None)
  Receive Date: 20120119
  Receipt Date: 20120111
  Transmission Date: 20120608
  Serious: Yes (Hospitalization)
  Sender: FDA-Public Use
  Company Number: PHHY2012FR003156

PATIENT
  Age: 63 Year
  Sex: Male

DRUGS (3)
  1. DEPAKENE [Concomitant]
     Dosage: 500 MG, DAILY
  2. TERBINAFINE HCL [Suspect]
     Dosage: 250 MG, DAILY
     Route: 048
     Dates: start: 20110610, end: 20110906
  3. RISPERDAL [Interacting]
     Dosage: 2 MG, DAILY
     Dates: start: 20080101

REACTIONS (24)
  - BILIRUBIN CONJUGATED INCREASED [None]
  - ALANINE AMINOTRANSFERASE INCREASED [None]
  - CHOLESTASIS [None]
  - DRUG INTERACTION [None]
  - CHOLANGIOLITIS [None]
  - RHABDOMYOLYSIS [None]
  - CYTOLYTIC HEPATITIS [None]
  - INFLAMMATION [None]
  - FALL [None]
  - BLOOD BILIRUBIN INCREASED [None]
  - ANTIPSYCHOTIC DRUG LEVEL INCREASED [None]
  - BILE DUCT STENOSIS [None]
  - BLOOD CREATININE INCREASED [None]
  - SOMNOLENCE [None]
  - C-REACTIVE PROTEIN INCREASED [None]
  - HYPERSOMNIA [None]
  - CHOLELITHIASIS [None]
  - MUSCULAR WEAKNESS [None]
  - RENAL FAILURE ACUTE [None]
  - ASPARTATE AMINOTRANSFERASE INCREASED [None]
  - GAMMA-GLUTAMYLTRANSFERASE INCREASED [None]
  - AGITATION [None]
  - SPHINCTER OF ODDI DYSFUNCTION [None]
  - BLOOD CREATINE PHOSPHOKINASE INCREASED [None]
